FAERS Safety Report 11658879 (Version 1)
Quarter: 2015Q4

REPORT INFORMATION
  Report Type: Spontaneous
  Country: US (occurrence: None)
  Receive Date: 20151023
  Receipt Date: 20151023
  Transmission Date: 20160304
  Serious: No
  Sender: FDA-Public Use
  Company Number: None

PATIENT
  Age: 45 Year
  Sex: Male

DRUGS (8)
  1. ASPIRIN. [Concomitant]
     Active Substance: ASPIRIN
  2. RANITIDINE [Concomitant]
     Active Substance: RANITIDINE\RANITIDINE HYDROCHLORIDE
  3. CALCITROL [Concomitant]
     Active Substance: CALCITRIOL
  4. TRIUMEQ [Suspect]
     Active Substance: ABACAVIR SULFATE\DOLUTEGRAVIR SODIUM\LAMIVUDINE
     Indication: LIPODYSTROPHY ACQUIRED
     Route: 048
     Dates: start: 201508
  5. SPIRONOLACT [Concomitant]
  6. FOSINOPRIL [Concomitant]
     Active Substance: FOSINOPRIL
  7. AMLODIPINE [Concomitant]
     Active Substance: AMLODIPINE BESYLATE
  8. CHLORTHAL [Concomitant]

REACTIONS (1)
  - Dizziness [None]
